FAERS Safety Report 16427649 (Version 2)
Quarter: 2020Q3

REPORT INFORMATION
  Report Type: Spontaneous
  Country: DE (occurrence: FR)
  Receive Date: 20190613
  Receipt Date: 20200903
  Transmission Date: 20201102
  Serious: Yes (Death, Other)
  Sender: FDA-Public Use
  Company Number: FR-ELI_LILLY_AND_COMPANY-FR201906005220

PATIENT
  Age: 70 Year
  Sex: Male
  Weight: 67 kg

DRUGS (10)
  1. CLAIRYG [Suspect]
     Active Substance: HUMAN IMMUNOGLOBULIN G
     Indication: SQUAMOUS CELL CARCINOMA
     Dosage: 20 MG, MONTHLY (1/M)
     Route: 042
     Dates: start: 2018
  2. OXYCONTIN [Suspect]
     Active Substance: OXYCODONE HYDROCHLORIDE
     Indication: PAIN
     Dosage: 140 MG, DAILY
     Route: 048
  3. RITUXIMAB. [Suspect]
     Active Substance: RITUXIMAB
     Indication: WALDENSTROM^S MACROGLOBULINAEMIA
     Dosage: 700 MG, EACH 21 DAYS
     Route: 042
     Dates: start: 20180924, end: 20190115
  4. METHYLPREDNISOLONE. [Suspect]
     Active Substance: METHYLPREDNISOLONE
     Indication: SQUAMOUS CELL CARCINOMA
     Dosage: 40 MG, WEEKLY (1/W)
     Route: 042
     Dates: start: 20190131
  5. IMBRUVICA [Suspect]
     Active Substance: IBRUTINIB
     Indication: WALDENSTROM^S MACROGLOBULINAEMIA
     Dosage: 1 DOSAGE FORM, EACH 21 DAYS
     Route: 048
     Dates: start: 20170104
  6. CISPLATINE [Suspect]
     Active Substance: CISPLATIN
     Indication: SQUAMOUS CELL CARCINOMA
     Dosage: 413 MG, UNK
     Route: 042
     Dates: start: 20190208, end: 20190320
  7. LAROXYL [Suspect]
     Active Substance: AMITRIPTYLINE HYDROCHLORIDE
     Indication: NEURALGIA
     Dosage: 15 MG, UNK
     Route: 048
  8. ERBITUX [Suspect]
     Active Substance: CETUXIMAB
     Indication: SQUAMOUS CELL CARCINOMA
     Dosage: 445 MG, WEEKLY (1/W)
     Route: 042
     Dates: start: 20190131
  9. TOLEXINE [DOXYCYCLINE] [Suspect]
     Active Substance: DOXYCYCLINE
     Indication: ACNE
     Dosage: 1 DOSAGE FORM, DAILY
     Route: 048
     Dates: start: 201901
  10. FLUOROURACILE [Suspect]
     Active Substance: FLUOROURACIL
     Indication: SQUAMOUS CELL CARCINOMA
     Dosage: 7200 MG, UNK
     Route: 042
     Dates: start: 20190208, end: 20190324

REACTIONS (2)
  - Deafness unilateral [Not Recovered/Not Resolved]
  - Malignant neoplasm progression [Fatal]

NARRATIVE: CASE EVENT DATE: 20190427
